FAERS Safety Report 7426430-1 (Version None)
Quarter: 2011Q2

REPORT INFORMATION
  Report Type: 
  Country: None (occurrence: None)
  Receive Date: 20110420
  Receipt Date: 20110415
  Transmission Date: 20111010
  Serious: Yes (Death, Life-Threatening, Hospitalization)
  Sender: FDA-Public Use
  Company Number: JP-JNJFOC-20110106264

PATIENT
  Sex: Female
  Weight: 57 kg

DRUGS (38)
  1. ZOSYN [Suspect]
     Indication: INTERSTITIAL LUNG DISEASE
     Route: 041
  2. HUMULIN R [Concomitant]
     Indication: DIABETES MELLITUS
     Route: 058
  3. SOLU-MEDROL [Concomitant]
     Indication: INTERSTITIAL LUNG DISEASE
     Route: 041
  4. SOLU-MEDROL [Concomitant]
     Route: 041
  5. VANCOMYCIN HYDROCHLORIDE [Concomitant]
     Indication: INFECTION
     Route: 041
  6. DALTEPARIN SODIUM [Concomitant]
     Route: 041
  7. DOXIL [Suspect]
     Indication: OVARIAN CANCER RECURRENT
     Route: 042
  8. NORVASC [Concomitant]
     Indication: HYPERTENSION
     Route: 048
  9. DALTEPARIN SODIUM [Concomitant]
     Route: 041
  10. BACTRIM [Concomitant]
     Indication: INTERSTITIAL LUNG DISEASE
     Route: 041
  11. PREDOPA [Concomitant]
     Route: 041
  12. DORMICUM [Concomitant]
     Indication: SEDATION
     Route: 042
  13. RECOMODULIN [Concomitant]
     Indication: DISSEMINATED INTRAVASCULAR COAGULATION
     Route: 041
  14. CONCENTRATED HUMAN BLOOD PLATELETS [Concomitant]
     Indication: PLATELET COUNT DECREASED
     Route: 041
  15. DOXIL [Suspect]
     Route: 042
  16. MINOMYCIN [Suspect]
     Indication: PYREXIA
     Route: 041
  17. DAI-KENCHU-TO [Concomitant]
     Indication: CONSTIPATION
     Route: 048
  18. SOLU-MEDROL [Concomitant]
     Route: 041
  19. PREDOPA [Concomitant]
     Indication: BLOOD PRESSURE DECREASED
     Route: 041
  20. DOXIL [Suspect]
     Indication: MALIGNANT PERITONEAL NEOPLASM
     Route: 042
  21. MUCOSTA [Concomitant]
     Indication: PROPHYLAXIS
     Route: 048
  22. DORMICUM [Concomitant]
     Indication: RESTLESSNESS
     Route: 042
  23. VANCOMYCIN HYDROCHLORIDE [Concomitant]
     Route: 041
  24. FUTHAN [Concomitant]
     Route: 041
  25. PRODIF [Concomitant]
     Indication: FUNGAL INFECTION
     Route: 042
  26. PREDONINE [Concomitant]
     Indication: INTERSTITIAL LUNG DISEASE
     Route: 041
  27. METHYCOBAL [Concomitant]
     Indication: NEUROPATHY PERIPHERAL
     Route: 048
  28. MAGNESIUM OXIDE [Concomitant]
     Indication: CONSTIPATION
     Route: 048
  29. ZITHROMAX [Concomitant]
     Indication: PROPHYLAXIS
     Route: 048
  30. DALTEPARIN SODIUM [Concomitant]
     Indication: DISSEMINATED INTRAVASCULAR COAGULATION
     Route: 041
  31. FUTHAN [Concomitant]
     Indication: DISSEMINATED INTRAVASCULAR COAGULATION
     Route: 041
  32. BENAMBAX [Concomitant]
     Indication: INTERSTITIAL LUNG DISEASE
     Route: 041
  33. DOXIL [Suspect]
     Route: 042
  34. MINOMYCIN [Suspect]
     Indication: INFECTION
     Route: 041
  35. GOSHA-JINKI-GAN [Concomitant]
     Indication: NEUROPATHY PERIPHERAL
     Route: 048
  36. BACTRIM [Concomitant]
     Indication: PLATELET COUNT DECREASED
     Route: 041
  37. ELASPOL [Concomitant]
     Indication: INTERSTITIAL LUNG DISEASE
     Route: 041
  38. REMINARON [Concomitant]
     Indication: DISSEMINATED INTRAVASCULAR COAGULATION
     Route: 041

REACTIONS (13)
  - ANURIA [None]
  - HEPATIC FUNCTION ABNORMAL [None]
  - DEHYDRATION [None]
  - CARDIAC FAILURE [None]
  - MALAISE [None]
  - DECREASED APPETITE [None]
  - PANCYTOPENIA [None]
  - RESTLESSNESS [None]
  - BONE MARROW FAILURE [None]
  - DISSEMINATED INTRAVASCULAR COAGULATION [None]
  - INTERSTITIAL LUNG DISEASE [None]
  - BLOOD PRESSURE DECREASED [None]
  - DEEP VEIN THROMBOSIS [None]
